FAERS Safety Report 10103697 (Version 3)
Quarter: 2014Q2

REPORT INFORMATION
  Report Type: Spontaneous
  Country: JP (occurrence: JP)
  Receive Date: 20140424
  Receipt Date: 20140505
  Transmission Date: 20141212
  Serious: Yes (Life-Threatening, Hospitalization, Other)
  Sender: FDA-Public Use
  Company Number: JP-CELGENEUS-087-21660-14043331

PATIENT
  Age: 62 Year
  Sex: Female
  Weight: 47 kg

DRUGS (5)
  1. ABRAXANE [Suspect]
     Indication: GASTRIC CANCER
     Dosage: 380 MILLIGRAM
     Route: 041
     Dates: start: 20140312, end: 20140312
  2. ABRAXANE [Suspect]
     Dosage: 220 MILLIGRAM/SQ. METER
     Route: 041
     Dates: start: 20140402
  3. NESINA [Concomitant]
     Indication: DIABETES MELLITUS
     Dosage: 12.5 MILLIGRAM
     Route: 048
  4. NAIXAN [Concomitant]
     Indication: PYREXIA
     Dosage: 200 MILLIGRAM
     Route: 048
     Dates: start: 20140303
  5. NEXIUM [Concomitant]
     Indication: PRODUCT USED FOR UNKNOWN INDICATION
     Dosage: 20 MILLIGRAM
     Route: 048
     Dates: start: 20140303

REACTIONS (4)
  - White blood cell count decreased [Recovered/Resolved]
  - Neutrophil count decreased [Recovered/Resolved]
  - Eosinophil count increased [Recovered/Resolved]
  - Pruritus [Recovered/Resolved]
